FAERS Safety Report 19757579 (Version 1)
Quarter: 2021Q3

REPORT INFORMATION
  Report Type: Report from Study
  Country: MX (occurrence: MX)
  Receive Date: 20210827
  Receipt Date: 20210827
  Transmission Date: 20211014
  Serious: Yes (Death, Hospitalization)
  Sender: FDA-Public Use
  Company Number: MX-UCBSA-2021040483

PATIENT
  Age: 4 Month
  Sex: Male
  Weight: 8 kg

DRUGS (3)
  1. SABRIL [Concomitant]
     Active Substance: VIGABATRIN
     Indication: SEIZURE
     Dosage: .5 DOSAGE FORM, ONCE DAILY (QD)
     Route: 048
     Dates: start: 201802, end: 20210225
  2. LEVETIRACETAM. [Suspect]
     Active Substance: LEVETIRACETAM
     Indication: OFF LABEL USE
     Dosage: 3 MILLILITER, ONCE DAILY (QD)
     Route: 048
     Dates: start: 2020, end: 20210225
  3. LEVETIRACETAM. [Suspect]
     Active Substance: LEVETIRACETAM
     Indication: INFANTILE SPASMS
     Dosage: 1.7 MILLILITER, 2X/DAY (BID)
     Route: 048
     Dates: start: 201802, end: 2020

REACTIONS (3)
  - Pneumonia [Fatal]
  - Off label use [Fatal]
  - Dyspnoea [Recovering/Resolving]

NARRATIVE: CASE EVENT DATE: 201802
